FAERS Safety Report 4600665-5 (Version None)
Quarter: 2005Q1

REPORT INFORMATION
  Report Type: 
  Country: None (occurrence: None)
  Receive Date: 20050304
  Receipt Date: 20050221
  Transmission Date: 20050727
  Serious: Yes (Hospitalization)
  Sender: FDA-Public Use
  Company Number: 2005033417

PATIENT
  Age: 15 Year
  Sex: Female
  Weight: 43.7 kg

DRUGS (1)
  1. GENOTROPIN [Suspect]
     Indication: HYPOPITUITARISM
     Dosage: 0.33 MG/KG (1 IN 1 D), SUBCUTANEOUS
     Route: 058
     Dates: start: 20010809, end: 20041123

REACTIONS (2)
  - BONE NEOPLASM [None]
  - SPINAL DISORDER [None]
